FAERS Safety Report 7933418-0 (Version None)
Quarter: 2011Q4

REPORT INFORMATION
  Report Type: 
  Country: None (occurrence: None)
  Receive Date: 20111116
  Receipt Date: 20111106
  Transmission Date: 20120403
  Serious: Yes (Other)
  Sender: FDA-Public Use
  Company Number: 2011SP052227

PATIENT
  Age: 55 Year
  Sex: Male

DRUGS (3)
  1. TELAPREVIR [Suspect]
     Indication: HEPATITIS C
     Dates: start: 20111006
  2. PEG-INTRON [Suspect]
     Indication: HEPATITIS C
     Dates: start: 20111006
  3. RIBAVIRIN [Suspect]
     Indication: HEPATITIS C
     Dates: start: 20111006

REACTIONS (6)
  - CHILLS [None]
  - PLATELET COUNT DECREASED [None]
  - PYREXIA [None]
  - WHITE BLOOD CELL COUNT DECREASED [None]
  - DYSPNOEA EXERTIONAL [None]
  - ASCITES [None]
